FAERS Safety Report 20034503 (Version 1)
Quarter: 2021Q4

REPORT INFORMATION
  Report Type: Spontaneous
  Country: DE (occurrence: DE)
  Receive Date: 20211104
  Receipt Date: 20211104
  Transmission Date: 20220304
  Serious: Yes (Hospitalization)
  Sender: FDA-Public Use
  Company Number: DE-ADRED-06902-01

PATIENT
  Age: 39 Year
  Sex: Female

DRUGS (2)
  1. PACLITAXEL [Suspect]
     Active Substance: PACLITAXEL
     Indication: Product used for unknown indication
     Dosage: 175 MG/M2, ACCORDING TO REGIMEN
  2. CARBOPLATIN [Suspect]
     Active Substance: CARBOPLATIN
     Indication: Product used for unknown indication
     Dosage: BY REGIMEN

REACTIONS (5)
  - Pyrexia [Unknown]
  - General physical health deterioration [Unknown]
  - Anaemia [Unknown]
  - Tachycardia [Unknown]
  - Urinary incontinence [Unknown]
